FAERS Safety Report 7707010-7 (Version None)
Quarter: 2011Q3

REPORT INFORMATION
  Report Type: 
  Country: None (occurrence: None)
  Receive Date: 20110824
  Receipt Date: 20110817
  Transmission Date: 20111222
  Serious: No
  Sender: FDA-Public Use
  Company Number: US-PFIZER INC-2011190902

PATIENT
  Sex: Female
  Weight: 67.12 kg

DRUGS (3)
  1. SUCRALFATE [Suspect]
     Indication: ABDOMINAL DISTENSION
     Dosage: 1 G, 2X/DAY
     Route: 048
     Dates: start: 20110701, end: 20110701
  2. PROTONIX [Suspect]
     Indication: GASTRIC DISORDER
     Dosage: 40 MG, DAILY
     Route: 048
     Dates: start: 20060101, end: 20110815
  3. PROTONIX [Suspect]
     Dosage: 40 MG, DAILY
     Route: 048
     Dates: start: 20110817

REACTIONS (3)
  - ABDOMINAL DISTENSION [None]
  - PYREXIA [None]
  - INSOMNIA [None]
